FAERS Safety Report 6310501-7 (Version None)
Quarter: 2009Q3

REPORT INFORMATION
  Report Type: 
  Country: None (occurrence: None)
  Receive Date: 20090811
  Receipt Date: 20090522
  Transmission Date: 20100115
  Serious: Yes (Other)
  Sender: FDA-Public Use
  Company Number: 1000006199

PATIENT
  Age: 53 Year
  Sex: Female

DRUGS (9)
  1. SAVELLA [Suspect]
     Indication: FIBROMYALGIA
     Dosage: SEE IMAGE
     Route: 048
     Dates: start: 20090505, end: 20090505
  2. SAVELLA [Suspect]
     Indication: FIBROMYALGIA
     Dosage: SEE IMAGE
     Route: 048
     Dates: start: 20090506, end: 20090507
  3. SAVELLA [Suspect]
     Indication: FIBROMYALGIA
     Dosage: SEE IMAGE
     Route: 048
     Dates: start: 20090508, end: 20090511
  4. SAVELLA [Suspect]
     Indication: FIBROMYALGIA
     Dosage: SEE IMAGE
     Route: 048
     Dates: start: 20090512
  5. AMBIEN [Concomitant]
  6. KLONOPIN [Concomitant]
  7. MULTI-VITAMIN [Concomitant]
  8. THYROTRIL [Concomitant]
  9. 5-HTP [Concomitant]

REACTIONS (1)
  - BLOOD PRESSURE INCREASED [None]
